FAERS Safety Report 6829950-3 (Version None)
Quarter: 2010Q3

REPORT INFORMATION
  Report Type: 
  Country: None (occurrence: None)
  Receive Date: 20100711
  Receipt Date: 20100407
  Transmission Date: 20110219
  Serious: No
  Sender: FDA-Public Use
  Company Number: US-ALLERGAN-1004534US

PATIENT
  Age: 64 Year
  Sex: Female

DRUGS (6)
  1. LATISSE [Suspect]
     Indication: GROWTH OF EYELASHES
     Dosage: 1 GTT, QHS
  2. NEXIUM [Concomitant]
     Dosage: UNK
  3. COMPLETE MOISTURE [Concomitant]
     Dosage: UNK
  4. MOBIC [Concomitant]
     Dosage: UNK
  5. FISH OIL [Concomitant]
     Dosage: UNK
  6. COMBINATIONS OF VITAMINS [Concomitant]
     Dosage: UNK

REACTIONS (3)
  - EYE PRURITUS [None]
  - EYELID OEDEMA [None]
  - EYELID PAIN [None]
